FAERS Safety Report 16281134 (Version 2)
Quarter: 2019Q2

REPORT INFORMATION
  Report Type: Spontaneous
  Country: DE (occurrence: DE)
  Receive Date: 20190507
  Receipt Date: 20190527
  Transmission Date: 20190711
  Serious: Yes (Hospitalization)
  Sender: FDA-Public Use
  Company Number: PHHY2019DE102891

PATIENT
  Age: 68 Year
  Sex: Male

DRUGS (8)
  1. CLARITHROMYCIN. [Concomitant]
     Active Substance: CLARITHROMYCIN
     Indication: EVIDENCE BASED TREATMENT
     Dosage: 500 MG, BID
     Route: 042
  2. TACROLIMUS. [Suspect]
     Active Substance: TACROLIMUS
     Indication: ALLOGENIC STEM CELL TRANSPLANTATION
     Dosage: UNK
     Route: 065
  3. TACROLIMUS. [Suspect]
     Active Substance: TACROLIMUS
     Indication: IMMUNOSUPPRESSANT DRUG THERAPY
  4. FLUCLOXACILLIN [Concomitant]
     Active Substance: FLUCLOXACILLIN
     Indication: PRODUCT USED FOR UNKNOWN INDICATION
     Dosage: 2 G, TID
     Route: 065
  5. GANCICLOVIR. [Concomitant]
     Active Substance: GANCICLOVIR
     Indication: CYTOMEGALOVIRUS INFECTION
     Dosage: UNK
     Route: 065
  6. LINEZOLID. [Concomitant]
     Active Substance: LINEZOLID
     Indication: PRODUCT USED FOR UNKNOWN INDICATION
     Dosage: UNK
     Route: 065
  7. PIPERACILLIN/TAZOBACTAM [Concomitant]
     Active Substance: PIPERACILLIN SODIUM\TAZOBACTAM SODIUM
     Indication: EVIDENCE BASED TREATMENT
     Dosage: PIPERACILLIN: 4 G AND TAZOBACTAM: 5 G, TID
     Route: 042
  8. CEFTRIAXONE. [Concomitant]
     Active Substance: CEFTRIAXONE
     Indication: EVIDENCE BASED TREATMENT
     Dosage: 2 G, QD
     Route: 042

REACTIONS (21)
  - Necrotising oesophagitis [Unknown]
  - Staphylococcal sepsis [Recovering/Resolving]
  - Respiratory disorder [Unknown]
  - Skin necrosis [Unknown]
  - Encephalopathy [Recovering/Resolving]
  - Schistocytosis [Unknown]
  - Anuria [Unknown]
  - Haematemesis [Unknown]
  - Cardiac failure [Unknown]
  - Septic shock [Unknown]
  - Ascites [Unknown]
  - Pleural effusion [Unknown]
  - Oedema [Unknown]
  - Haemorrhage [Unknown]
  - Red blood cell schistocytes present [Unknown]
  - Melaena [Unknown]
  - Gastric ulcer [Unknown]
  - Product use in unapproved indication [Unknown]
  - Toxicity to various agents [Unknown]
  - Swelling face [Unknown]
  - Renal failure [Unknown]
